FAERS Safety Report 8834770 (Version 1)
Quarter: 2012Q4

REPORT INFORMATION
  Report Type: 
  Country: US (occurrence: US)
  Receive Date: 20121010
  Receipt Date: 20121010
  Transmission Date: 20130627
  Serious: Yes (Death, Other)
  Sender: FDA-Public Use
  Company Number: US-ROXANE LABORATORIES, INC.-2012-RO-01976RO

PATIENT
  Age: 8 Year
  Sex: Female
  Weight: 19 kg

DRUGS (4)
  1. MORPHINE [Suspect]
     Indication: PAIN
  2. MACROGOL [Suspect]
     Indication: CONSTIPATION
  3. FENTANYL [Suspect]
     Indication: PAIN
     Route: 062
  4. MORPHINE [Suspect]
     Indication: PAIN
     Route: 042

REACTIONS (4)
  - Death [Fatal]
  - Constipation [Recovered/Resolved]
  - Drug ineffective [Unknown]
  - Agitation [Unknown]
